FAERS Safety Report 6168439-4 (Version None)
Quarter: 2009Q2

REPORT INFORMATION
  Report Type: 
  Country: None (occurrence: None)
  Receive Date: 20090427
  Receipt Date: 20090417
  Transmission Date: 20091009
  Serious: Yes (Death, Hospitalization)
  Sender: FDA-Public Use
  Company Number: A0748499A

PATIENT
  Age: 52 Year
  Sex: Male
  Weight: 113.6 kg

DRUGS (8)
  1. AVANDIA [Suspect]
     Dosage: 4MG PER DAY
     Route: 048
     Dates: start: 19990616, end: 20050813
  2. GLUCOVANCE [Concomitant]
  3. AMBIEN [Concomitant]
  4. LORTAB [Concomitant]
  5. AMARYL [Concomitant]
  6. NAPROSYN [Concomitant]
  7. REZULIN [Concomitant]
     Dates: start: 19990101
  8. SKELAXIN [Concomitant]

REACTIONS (5)
  - ARTERIOSCLEROSIS CORONARY ARTERY [None]
  - CARDIAC DISORDER [None]
  - CARDIAC FAILURE CONGESTIVE [None]
  - DEATH [None]
  - MYOCARDIAL INFARCTION [None]
